FAERS Safety Report 9233654 (Version 2)
Quarter: 2013Q2

REPORT INFORMATION
  Report Type: Spontaneous
  Country: US (occurrence: US)
  Receive Date: 20130416
  Receipt Date: 20130416
  Transmission Date: 20140414
  Serious: No
  Sender: FDA-Public Use
  Company Number: US-BANPHARM-20130585

PATIENT
  Sex: Male

DRUGS (3)
  1. ALEVE LIQUID GELS 220MG [Suspect]
     Indication: BACK PAIN
     Dosage: 1 DF, BID,
     Route: 048
     Dates: start: 201108, end: 20120223
  2. SYNTHROID [Concomitant]
  3. ALEVE CAPLETS [Suspect]

REACTIONS (3)
  - Drug effect decreased [Unknown]
  - Therapeutic response unexpected with drug substitution [Unknown]
  - Incorrect drug administration duration [Unknown]
